FAERS Safety Report 5906073-9 (Version None)
Quarter: 2008Q4

REPORT INFORMATION
  Report Type: 
  Country: None (occurrence: None)
  Receive Date: 20081002
  Receipt Date: 20080923
  Transmission Date: 20090506
  Serious: Yes (Hospitalization)
  Sender: FDA-Public Use
  Company Number: PHHY2008IT22521

PATIENT
  Sex: Female

DRUGS (1)
  1. GLEEVEC [Suspect]
     Dosage: 400 MG/DAILY
     Route: 048
     Dates: start: 20050101, end: 20080825

REACTIONS (3)
  - APHASIA [None]
  - CEREBRAL ISCHAEMIA [None]
  - THROMBOCYTOPENIA [None]
